FAERS Safety Report 4392102-3 (Version None)
Quarter: 2004Q3

REPORT INFORMATION
  Report Type: 
  Country: None (occurrence: None)
  Receive Date: 20040702
  Receipt Date: 20040311
  Transmission Date: 20050211
  Serious: Yes (Other)
  Sender: FDA-Public Use
  Company Number: 2004UW04621

PATIENT
  Age: 75 Year
  Sex: Female
  Weight: 68.0396 kg

DRUGS (4)
  1. CRESTOR [Suspect]
     Indication: BLOOD CHOLESTEROL INCREASED
     Dosage: 10 MG PO
     Route: 048
  2. ACCUPRIL [Concomitant]
  3. POTASSIUM [Concomitant]
  4. WATER PILL [Concomitant]

REACTIONS (2)
  - MYALGIA [None]
  - PERIPHERAL COLDNESS [None]
